FAERS Safety Report 8276807-X (Version None)
Quarter: 2012Q2

REPORT INFORMATION
  Report Type: 
  Country: None (occurrence: None)
  Receive Date: 20120412
  Receipt Date: 20120410
  Transmission Date: 20120825
  Serious: Yes (Other)
  Sender: FDA-Public Use
  Company Number: DE-PFIZER INC-2012089162

PATIENT
  Age: 75 Year
  Sex: Male

DRUGS (2)
  1. CAVERJECT IMPULSE [Suspect]
  2. CAVERJECT [Suspect]

REACTIONS (1)
  - HEPATITIS C [None]
